FAERS Safety Report 8926727 (Version 3)
Quarter: 2013Q1

REPORT INFORMATION
  Report Type: Spontaneous
  Country: US (occurrence: US)
  Receive Date: 20121127
  Receipt Date: 20130109
  Transmission Date: 20140127
  Serious: No
  Sender: FDA-Public Use
  Company Number: US-PFIZER INC-2012271003

PATIENT
  Age: 60 Year
  Sex: Female
  Weight: 87.53 kg

DRUGS (13)
  1. CELEBREX [Suspect]
     Indication: ARTHRITIS
     Dosage: 100 MG, 1X/DAY
     Route: 048
     Dates: end: 20121205
  2. LISINOPRIL [Concomitant]
     Dosage: 10 MG, 1X/DAY
  3. MECLIZINE [Concomitant]
     Dosage: 25 MG, 2X/DAY
  4. ATENOLOL [Concomitant]
     Dosage: 25 MG, 2X/DAY
  5. SIMVASTATIN [Concomitant]
     Dosage: 20 MG, 1X/DAY AT BEDTIME
  6. ZOLOFT [Concomitant]
     Dosage: 50 MG, 1X/DAY
  7. OMEPRAZOLE [Concomitant]
     Dosage: 30 MG, UNK
  8. FISH OIL [Concomitant]
     Dosage: 1000MG - 4000MG 1 Q-DAY
  9. SERTRALINE [Concomitant]
     Dosage: 50 MG, 1X/DAY
  10. DOCUSATE SODIUM [Concomitant]
     Dosage: 100 MG, 1X/DAY
  11. MECLOZINE HYDROCHLORIDE [Concomitant]
     Indication: VERTIGO
     Dosage: 12.5 MG, 3X/DAY
  12. VITAMIN E [Concomitant]
     Dosage: 100 IU, 1X/DAY
  13. PRILOSEC [Concomitant]
     Dosage: 20 MG, 1X/DAY DELAYED RELEASE CAPSULE

REACTIONS (18)
  - Physical product label issue [Unknown]
  - Bone pain [Unknown]
  - Asthenia [Not Recovered/Not Resolved]
  - Dizziness [Not Recovered/Not Resolved]
  - Nausea [Unknown]
  - Vomiting [Unknown]
  - Myalgia [Not Recovered/Not Resolved]
  - Pain [Unknown]
  - Diarrhoea [Unknown]
  - Arthralgia [Unknown]
  - Joint stiffness [Unknown]
  - Joint swelling [Unknown]
  - Drug intolerance [Unknown]
  - Skin plaque [Unknown]
  - Osteoarthritis [Unknown]
  - Anxiety [Unknown]
  - Aspartate aminotransferase increased [Unknown]
  - Alanine aminotransferase increased [Unknown]
